FAERS Safety Report 4921562-1 (Version None)
Quarter: 2006Q1

REPORT INFORMATION
  Report Type: 
  Country: None (occurrence: None)
  Receive Date: 20060221
  Receipt Date: 20060206
  Transmission Date: 20060701
  Serious: Yes (Hospitalization)
  Sender: FDA-Public Use
  Company Number: 2006017953

PATIENT
  Age: 22 Year
  Sex: Male

DRUGS (4)
  1. DEXTROMETHORPHAN (DEXTROMETHORPHAN) [Suspect]
     Dosage: OVER 900 MG SPORADICALLY, ORAL
     Route: 048
  2. LITHIUM (LITHIUM) [Suspect]
     Dosage: 600 MG TWICE DAILY, UNKNOWN
  3. FLUOXETINE [Suspect]
     Dosage: 20 MG DAILY, UNKNOWN
  4. CLONAZEPAM [Concomitant]

REACTIONS (4)
  - BLOOD PRESSURE INCREASED [None]
  - DRUG ABUSER [None]
  - INTENTIONAL OVERDOSE [None]
  - SEROTONIN SYNDROME [None]
